FAERS Safety Report 11143070 (Version 2)
Quarter: 2016Q4

REPORT INFORMATION
  Report Type: Report from Study
  Country: FR (occurrence: FR)
  Receive Date: 20150528
  Receipt Date: 20161021
  Transmission Date: 20170206
  Serious: Yes (Hospitalization)
  Sender: FDA-Public Use
  Company Number: FR-ROCHE-1161190

PATIENT
  Age: 56 Year
  Sex: Female

DRUGS (6)
  1. ROACTEMRA [Concomitant]
     Active Substance: TOCILIZUMAB
  2. RITUXIMAB [Suspect]
     Active Substance: RITUXIMAB
     Indication: RHEUMATOID ARTHRITIS
     Route: 042
     Dates: start: 20070215
  3. CORTANCYL [Concomitant]
     Active Substance: PREDNISONE
  4. RITUXIMAB [Interacting]
     Active Substance: RITUXIMAB
     Route: 042
     Dates: start: 20070302
  5. PLAQUENIL [Interacting]
     Active Substance: HYDROXYCHLOROQUINE SULFATE
     Indication: PRODUCT USED FOR UNKNOWN INDICATION
     Route: 065
  6. INFLIXIMAB [Concomitant]
     Active Substance: INFLIXIMAB

REACTIONS (10)
  - Cough [Recovered/Resolved]
  - Device related infection [Recovered/Resolved]
  - Subcutaneous abscess [Recovered/Resolved]
  - Drug hypersensitivity [Recovered/Resolved]
  - Drug reaction with eosinophilia and systemic symptoms [Recovered/Resolved]
  - Varicella [Recovered/Resolved]
  - Fatigue [Recovered/Resolved]
  - Pollakiuria [Recovered/Resolved]
  - Headache [Recovered/Resolved]
  - Diverticulum intestinal [Recovered/Resolved]

NARRATIVE: CASE EVENT DATE: 20070216
